FAERS Safety Report 21136939 (Version 1)
Quarter: 2022Q3

REPORT INFORMATION
  Report Type: Spontaneous
  Country: US (occurrence: None)
  Receive Date: 20220726
  Receipt Date: 20220726
  Transmission Date: 20221027
  Serious: Yes (Death)
  Sender: FDA-Public Use
  Company Number: None

PATIENT
  Sex: Female

DRUGS (22)
  1. PROLIA [Suspect]
     Active Substance: DENOSUMAB
     Indication: Senile osteoporosis
     Dosage: OTHER FREQUENCY : 1 X 6 MONTHS;?
     Route: 058
  2. CLONIDINE HYDROCHLORIDE [Concomitant]
     Active Substance: CLONIDINE HYDROCHLORIDE
  3. VALSARTAN [Concomitant]
     Active Substance: VALSARTAN
  4. AMLODIPINE BESYLATE [Concomitant]
     Active Substance: AMLODIPINE BESYLATE
  5. ACETAMINOPHEN EXTRA STREN [Concomitant]
  6. IPRATROPIUM BROMIDE [Concomitant]
     Active Substance: IPRATROPIUM BROMIDE
  7. HYOSCYAMINE [Concomitant]
     Active Substance: HYOSCYAMINE
  8. LOPERAMIDE HYDROCHLORIDE [Concomitant]
     Active Substance: LOPERAMIDE HYDROCHLORIDE
  9. VITAMIN A [Concomitant]
     Active Substance: VITAMIN A
  10. IRON [Concomitant]
     Active Substance: IRON
  11. VITAMIN B12 [Concomitant]
     Active Substance: CYANOCOBALAMIN
  12. CALCIUM\CHOLECALCIFEROL [Concomitant]
     Active Substance: CALCIUM\CHOLECALCIFEROL
  13. MULTI-VITAMINS [Concomitant]
  14. ESTER-C [Concomitant]
  15. PROBIOTIC FORMULA [Concomitant]
  16. LOTEMAX [Concomitant]
     Active Substance: LOTEPREDNOL ETABONATE
  17. NYSTATIN [Concomitant]
     Active Substance: NYSTATIN
  18. BETAMETHASONE [Concomitant]
     Active Substance: BETAMETHASONE
  19. MECLIZINE [Concomitant]
     Active Substance: MECLIZINE HYDROCHLORIDE
  20. DIPHENHYDRAMINE HYDROCHLORIDE [Concomitant]
     Active Substance: DIPHENHYDRAMINE HYDROCHLORIDE
  21. VITAMIN D3 [Concomitant]
     Active Substance: CHOLECALCIFEROL
  22. CYMBALTA [Concomitant]
     Active Substance: DULOXETINE HYDROCHLORIDE

REACTIONS (5)
  - Rash [None]
  - Asthma [None]
  - COVID-19 [None]
  - Lung disorder [None]
  - Disease complication [None]
